FAERS Safety Report 16076624 (Version 2)
Quarter: 2019Q2

REPORT INFORMATION
  Report Type: Report from Study
  Country: JP (occurrence: JP)
  Receive Date: 20190315
  Receipt Date: 20190405
  Transmission Date: 20190711
  Serious: Yes (Death, Other)
  Sender: FDA-Public Use
  Company Number: PHJP2018JP013553

PATIENT
  Age: 47 Year
  Sex: Female

DRUGS (1)
  1. ZYKADIA [Suspect]
     Active Substance: CERITINIB
     Indication: NON-SMALL CELL LUNG CANCER STAGE IV
     Dosage: 750 MG, QD
     Route: 048
     Dates: start: 20170721, end: 20171019

REACTIONS (8)
  - Drug ineffective [Unknown]
  - Non-small cell lung cancer stage IV [Fatal]
  - Nausea [Recovered/Resolved]
  - Malignant neoplasm progression [Fatal]
  - Alanine aminotransferase increased [Unknown]
  - Hepatic function abnormal [Recovered/Resolved]
  - Metastases to central nervous system [Fatal]
  - Diarrhoea [Recovered/Resolved]

NARRATIVE: CASE EVENT DATE: 20170724
